FAERS Safety Report 18616789 (Version 3)
Quarter: 2022Q1

REPORT INFORMATION
  Report Type: Spontaneous
  Country: US (occurrence: US)
  Receive Date: 20201215
  Receipt Date: 20220314
  Transmission Date: 20220423
  Serious: Yes (Other)
  Sender: FDA-Public Use
  Company Number: US-GLAXOSMITHKLINE-US2020GSK244299

PATIENT
  Sex: Female

DRUGS (16)
  1. ZANTAC [Suspect]
     Active Substance: RANITIDINE HYDROCHLORIDE
     Indication: Dyspepsia
     Dosage: BOTH
     Route: 065
     Dates: start: 199401, end: 201901
  2. ZANTAC [Suspect]
     Active Substance: RANITIDINE HYDROCHLORIDE
     Indication: Dyspepsia
     Dosage: OTHER (PERIODS OF NON-USE (AT LEAST 3 MONTHS WITHOUT USE))
     Route: 065
     Dates: start: 199401, end: 201901
  3. ZANTAC [Suspect]
     Active Substance: RANITIDINE HYDROCHLORIDE
     Indication: Dyspepsia
     Dosage: BOTH
     Route: 065
     Dates: start: 199401, end: 201901
  4. ZANTAC [Suspect]
     Active Substance: RANITIDINE HYDROCHLORIDE
     Indication: Dyspepsia
     Dosage: OTHER (PERIODS OF NON-USE (AT LEAST 3 MONTHS WITHOUT USE))
     Route: 065
     Dates: start: 199401, end: 201901
  5. RANITIDINE [Suspect]
     Active Substance: RANITIDINE
     Indication: Dyspepsia
     Dosage: OTHER, OCCASIONAL
     Route: 065
     Dates: start: 199401, end: 201901
  6. RANITIDINE [Suspect]
     Active Substance: RANITIDINE
     Indication: Dyspepsia
  7. RANITIDINE [Suspect]
     Active Substance: RANITIDINE
     Indication: Dyspepsia
     Dosage: OTHER, OCCASIONAL
     Route: 065
     Dates: start: 199401, end: 201901
  8. RANITIDINE [Suspect]
     Active Substance: RANITIDINE
     Indication: Dyspepsia
  9. RANITIDINE HYDROCHLORIDE [Suspect]
     Active Substance: RANITIDINE HYDROCHLORIDE
     Indication: Dyspepsia
     Dosage: OTHER, PERIODS OF NON-USE (AT LEAST 3 MONTHS WITHOUT USE)
     Route: 065
     Dates: start: 199401, end: 201901
  10. RANITIDINE HYDROCHLORIDE [Suspect]
     Active Substance: RANITIDINE HYDROCHLORIDE
     Indication: Dyspepsia
  11. RANITIDINE [Suspect]
     Active Substance: RANITIDINE
     Indication: Dyspepsia
     Dosage: UNK
     Route: 065
     Dates: start: 199401, end: 201901
  12. RANITIDINE [Suspect]
     Active Substance: RANITIDINE
     Indication: Dyspepsia
     Dosage: OTHER, OCCASIONAL
     Route: 065
     Dates: start: 199401, end: 201901
  13. ZANTAC [Suspect]
     Active Substance: RANITIDINE HYDROCHLORIDE
     Indication: Dyspepsia
     Dosage: OTHER, PERIODS OF NON-USE (AT LEAST 3 MONTHS WITHOUT USE)
     Route: 065
     Dates: start: 199401, end: 201901
  14. ZANTAC [Suspect]
     Active Substance: RANITIDINE HYDROCHLORIDE
     Indication: Dyspepsia
  15. RANITIDINE [Suspect]
     Active Substance: RANITIDINE
     Indication: Dyspepsia
     Dosage: UNK
     Route: 065
     Dates: start: 199401, end: 201901
  16. RANITIDINE [Suspect]
     Active Substance: RANITIDINE
     Indication: Dyspepsia
     Dosage: OTHER, OCCASIONAL
     Route: 065
     Dates: start: 199401, end: 201901

REACTIONS (2)
  - Bladder cancer [Unknown]
  - Lung neoplasm malignant [Unknown]
